FAERS Safety Report 12338115 (Version 1)
Quarter: 2016Q2

REPORT INFORMATION
  Report Type: Spontaneous
  Country: US (occurrence: US)
  Receive Date: 20160505
  Receipt Date: 20160505
  Transmission Date: 20160815
  Serious: No
  Sender: FDA-Public Use
  Company Number: US-ASTRAZENECA-2016SE32452

PATIENT
  Sex: Male

DRUGS (1)
  1. MOVANTIK [Suspect]
     Active Substance: NALOXEGOL OXALATE
     Route: 048
     Dates: start: 20160323

REACTIONS (5)
  - Chills [Unknown]
  - Hyperhidrosis [Unknown]
  - Vomiting [Unknown]
  - Intentional product misuse [Unknown]
  - Malaise [Unknown]
